FAERS Safety Report 15693291 (Version 2)
Quarter: 2018Q4

REPORT INFORMATION
  Report Type: Report from Study
  Country: US (occurrence: US)
  Receive Date: 20181206
  Receipt Date: 20181213
  Transmission Date: 20190205
  Serious: Yes (Hospitalization, Other)
  Sender: FDA-Public Use
  Company Number: US-GILEAD-2018-0372117

PATIENT
  Age: 12 Year
  Sex: Male
  Weight: 36.2 kg

DRUGS (3)
  1. AMBRISENTAN [Suspect]
     Active Substance: AMBRISENTAN
     Indication: PULMONARY ARTERIAL HYPERTENSION
     Dosage: 5 MG, QD
     Route: 065
     Dates: start: 20181014
  2. ADCIRCA [Concomitant]
     Active Substance: TADALAFIL
  3. AMBRISENTAN [Suspect]
     Active Substance: AMBRISENTAN
     Indication: PATENT DUCTUS ARTERIOSUS
     Dosage: 10 MG, QD
     Route: 065
     Dates: start: 20181012

REACTIONS (6)
  - Flushing [Recovered/Resolved]
  - Feeling hot [Recovered/Resolved]
  - Coarctation of the aorta [Unknown]
  - Headache [Recovered/Resolved]
  - Facial pain [Recovered/Resolved]
  - Off label use [Not Recovered/Not Resolved]

NARRATIVE: CASE EVENT DATE: 201810
